FAERS Safety Report 13169685 (Version 1)
Quarter: 2017Q1

REPORT INFORMATION
  Report Type: Spontaneous
  Country: US (occurrence: US)
  Receive Date: 20170131
  Receipt Date: 20170131
  Transmission Date: 20170428
  Serious: No
  Sender: FDA-Public Use
  Company Number: US-ABBVIE-16K-163-1536141-00

PATIENT
  Sex: Female

DRUGS (4)
  1. SALVE [Concomitant]
     Indication: PRODUCT USED FOR UNKNOWN INDICATION
  2. CANNABIDIOL [Concomitant]
     Active Substance: CANNABIDIOL
     Indication: PRODUCT USED FOR UNKNOWN INDICATION
     Dosage: THREE HITS
     Dates: start: 201504
  3. DELTA 9 THC [Concomitant]
     Indication: PRODUCT USED FOR UNKNOWN INDICATION
     Dosage: THREE HITS
     Dates: start: 201504
  4. HUMIRA [Suspect]
     Active Substance: ADALIMUMAB
     Indication: PRODUCT USED FOR UNKNOWN INDICATION
     Route: 058

REACTIONS (6)
  - Rheumatoid arthritis [Unknown]
  - Joint crepitation [Unknown]
  - Dry mouth [Unknown]
  - Temporomandibular joint syndrome [Unknown]
  - Psoriasis [Unknown]
  - Pain [Unknown]
